FAERS Safety Report 23407389 (Version 2)
Quarter: 2024Q1

REPORT INFORMATION
  Report Type: Spontaneous
  Country: US (occurrence: US)
  Receive Date: 20240117
  Receipt Date: 20240205
  Transmission Date: 20240409
  Serious: Yes (Hospitalization, Other)
  Sender: FDA-Public Use
  Company Number: US-AUROBINDO-AUR-APL-2023-063824

PATIENT
  Age: 71 Year
  Sex: Male
  Weight: 126 kg

DRUGS (1)
  1. PIPERACILLIN AND TAZOBACTAM [Suspect]
     Active Substance: PIPERACILLIN SODIUM\TAZOBACTAM SODIUM
     Indication: Osteomyelitis
     Dosage: UNK (FIRST DOSE WAS ADMINISTERED)
     Route: 065

REACTIONS (3)
  - Anaphylactic reaction [Not Recovered/Not Resolved]
  - Hospitalisation [Not Recovered/Not Resolved]
  - Rash [Not Recovered/Not Resolved]

NARRATIVE: CASE EVENT DATE: 20231006
